FAERS Safety Report 4454541-1 (Version None)
Quarter: 2004Q3

REPORT INFORMATION
  Report Type: 
  Country: None (occurrence: None)
  Receive Date: 20040823
  Receipt Date: 20040507
  Transmission Date: 20050211
  Serious: Yes (Hospitalization)
  Sender: FDA-Public Use
  Company Number: CIP04001086

PATIENT
  Age: 64 Year
  Sex: Female

DRUGS (3)
  1. ASACOL [Suspect]
     Indication: COLITIS
     Dosage: 2400 MG DAILY, ORAL
     Route: 048
     Dates: start: 20040409, end: 20040401
  2. ROWASA [Suspect]
     Indication: COLITIS ULCERATIVE
     Dosage: ORAL
     Route: 048
     Dates: start: 20040409
  3. FLAGYL [Concomitant]

REACTIONS (1)
  - PANCREATITIS [None]
